FAERS Safety Report 8434365-0 (Version None)
Quarter: 2012Q2

REPORT INFORMATION
  Report Type: 
  Country: None (occurrence: None)
  Receive Date: 20120613
  Receipt Date: 20120612
  Transmission Date: 20120825
  Serious: Yes (Other)
  Sender: FDA-Public Use
  Company Number: ES-MERCK-1206ESP00018

PATIENT
  Age: 74 Year
  Sex: Male

DRUGS (1)
  1. FOSAMAX PLUS D [Suspect]
     Indication: HIP SURGERY
     Route: 048
     Dates: start: 20120401, end: 20120507

REACTIONS (1)
  - NECROTISING ULCERATIVE PERIODONTITIS [None]
